FAERS Safety Report 20045537 (Version 5)
Quarter: 2022Q1

REPORT INFORMATION
  Report Type: Report from Study
  Country: CN (occurrence: CN)
  Receive Date: 20211108
  Receipt Date: 20220201
  Transmission Date: 20220423
  Serious: Yes (Hospitalization)
  Sender: FDA-Public Use
  Company Number: CN-PFIZER INC-202101500034

PATIENT
  Age: 57 Year
  Sex: Female

DRUGS (15)
  1. METHOTREXATE SODIUM [Suspect]
     Active Substance: METHOTREXATE SODIUM
     Indication: Rheumatoid arthritis
     Dosage: MOST RECENT DOSE OF PRIOR TO SAE: 30AUG2021 (10 MG,1 IN 1 WK)
     Route: 048
     Dates: start: 20210621
  2. TOCILIZUMAB [Suspect]
     Active Substance: TOCILIZUMAB
     Indication: Rheumatoid arthritis
     Dosage: PRE-FILLED SYRINGE, MOST RECENT DOSE OF PRIOR TO SAE: 26AUG2021 (162 MG,1 IN 2 WK)
     Route: 058
     Dates: start: 20210618
  3. VITAMIN D2 [Concomitant]
     Active Substance: ERGOCALCIFEROL
     Dosage: 0.25 MG, 1 IN 1 D
     Route: 048
     Dates: start: 20210316, end: 20210920
  4. FOLIC ACID [Concomitant]
     Active Substance: FOLIC ACID
     Indication: Rheumatoid arthritis
     Dosage: UNK
     Dates: start: 20200703, end: 20210906
  5. ACETAMINOPHEN [Concomitant]
     Active Substance: ACETAMINOPHEN
     Dosage: UNK
     Dates: start: 20210715, end: 20210826
  6. TECHNETIUM 99MTC METHYLENEDIPHOSPHONATE [Concomitant]
     Indication: Rheumatoid arthritis
     Dosage: UNK
     Dates: start: 20210902, end: 20210907
  7. MAGNESIUM ISOGLYCYRRHIZINATE [Concomitant]
     Active Substance: MAGNESIUM ISOGLYCYRRHIZINATE
     Indication: Hepatic failure
     Dosage: UNK
     Dates: start: 20210902, end: 20210907
  8. CALCIUM ACETATE [Concomitant]
     Active Substance: CALCIUM ACETATE
     Indication: Osteoporosis
     Dosage: UNK
     Dates: start: 20210903, end: 20210907
  9. COMPOUND GLYCYRRHIZIN [DL-METHIONINE;GLYCINE;GLYCYRRHIZIC ACID, AMMONI [Concomitant]
     Indication: Hepatic failure
     Dosage: UNK
     Dates: start: 20210908, end: 20210916
  10. NITRENDIPINE [Concomitant]
     Active Substance: NITRENDIPINE
     Indication: Hypotension
     Dosage: UNK
     Dates: start: 20210904, end: 20210904
  11. ANGELICA SINENSIS ROOT [Concomitant]
     Active Substance: ANGELICA SINENSIS ROOT
     Dosage: UNK
     Dates: start: 20210907, end: 20210907
  12. FALLOPIA MULTIFLORA [Concomitant]
     Dosage: UNK
     Dates: start: 20210907, end: 20210907
  13. E JIAO [Concomitant]
     Dosage: UNK
     Dates: start: 20210907, end: 20210907
  14. OMEPRAZOLE [Concomitant]
     Active Substance: OMEPRAZOLE
     Dosage: UNK
     Dates: start: 20210916, end: 20210929
  15. IGURATIMOD [Concomitant]
     Active Substance: IGURATIMOD
     Indication: Rheumatoid arthritis
     Dosage: 25 MG, 1X/DAY
     Route: 048
     Dates: start: 20210916, end: 20211013

REACTIONS (1)
  - Intestinal obstruction [Recovered/Resolved]

NARRATIVE: CASE EVENT DATE: 20210828
